FAERS Safety Report 17764026 (Version 9)
Quarter: 2020Q3

REPORT INFORMATION
  Report Type: Spontaneous
  Country: US (occurrence: US)
  Receive Date: 20200511
  Receipt Date: 20200731
  Transmission Date: 20201102
  Serious: Yes (Other)
  Sender: FDA-Public Use
  Company Number: US-AUROBINDO-AUR-APL-2020-022168

PATIENT
  Age: 69 Year
  Sex: Female
  Weight: 70.76 kg

DRUGS (11)
  1. FLUTICASONE. [Concomitant]
     Active Substance: FLUTICASONE
     Indication: PRODUCT USED FOR UNKNOWN INDICATION
     Dosage: 1?2 SPRAY EACH NOSTRIL DAILY
     Route: 065
  2. ONDANSETRON ORALLY DISINTEGRATING TABLETS USP 8 MG [Suspect]
     Active Substance: ONDANSETRON
     Indication: CHEMOTHERAPY
     Dosage: UNK
     Route: 065
     Dates: start: 20200413, end: 20200415
  3. ONDANSETRON ORALLY DISINTEGRATING TABLETS USP 8 MG [Suspect]
     Active Substance: ONDANSETRON
     Dosage: 1 DOSAGE FORM, 3 TIMES A DAY (AS NEEDED, BY DISSOLVING UNDER TONGUE)
     Route: 048
     Dates: start: 20200325, end: 20200610
  4. ONDANSETRON ORALLY DISINTEGRATING TABLETS USP 8 MG [Suspect]
     Active Substance: ONDANSETRON
     Dosage: 1 DOSAGE FORM
     Route: 065
  5. CREON [Concomitant]
     Active Substance: PANCRELIPASE AMYLASE\PANCRELIPASE LIPASE\PANCRELIPASE PROTEASE
     Indication: PRODUCT USED FOR UNKNOWN INDICATION
     Dosage: 2 DOSAGE FORM, 3 TIMES A DAY (EACH MEAL)
     Route: 065
  6. DEXAMETHASONE. [Concomitant]
     Active Substance: DEXAMETHASONE
     Indication: PRODUCT USED FOR UNKNOWN INDICATION
     Dosage: MORNING WITH FOOD AND 2 TABLETS WITH MEAL
     Route: 065
  7. ONDANSETRON ORALLY DISINTEGRATING TABLETS USP 8 MG [Suspect]
     Active Substance: ONDANSETRON
     Indication: NAUSEA
     Dosage: 1 DOSAGE FORM, 3 TIMES A DAY, AS NEEDED
     Route: 048
     Dates: start: 20200323
  8. OLANZAPINE. [Concomitant]
     Active Substance: OLANZAPINE
     Indication: PRODUCT USED FOR UNKNOWN INDICATION
     Dosage: 20 MILLIGRAM, ONCE A DAY AT NIGHT
     Route: 065
  9. RESTASIS [Concomitant]
     Active Substance: CYCLOSPORINE
     Indication: PRODUCT USED FOR UNKNOWN INDICATION
     Dosage: 1 DOSAGE FORM, TWO TIMES A DAY (01 DROP IN EACH EYE)
     Route: 065
  10. OMEPRAZOLE. [Concomitant]
     Active Substance: OMEPRAZOLE
     Indication: PRODUCT USED FOR UNKNOWN INDICATION
     Dosage: 1 DOSAGE FORM, DAILY
     Route: 065
  11. ALLEGRA [Concomitant]
     Active Substance: FEXOFENADINE HYDROCHLORIDE
     Indication: PRODUCT USED FOR UNKNOWN INDICATION
     Dosage: 180 MILLIGRAM, ONCE A DAY
     Route: 065

REACTIONS (8)
  - Asthenia [Recovered/Resolved]
  - Therapeutic product effect incomplete [Unknown]
  - Tremor [Recovered/Resolved]
  - Balance disorder [Recovered/Resolved]
  - Shock [Recovered/Resolved]
  - Gait disturbance [Recovered/Resolved]
  - Dysstasia [Recovered/Resolved]
  - Product substitution issue [Unknown]

NARRATIVE: CASE EVENT DATE: 20200323
